FAERS Safety Report 5473993-1 (Version None)
Quarter: 2007Q3

REPORT INFORMATION
  Report Type: 
  Country: None (occurrence: None)
  Receive Date: 20070830
  Receipt Date: 20070508
  Transmission Date: 20080115
  Serious: No
  Sender: FDA-Public Use
  Company Number: 240079

PATIENT
  Age: 72 Year
  Sex: Female
  Weight: 54.5 kg

DRUGS (3)
  1. XOLAIR [Suspect]
     Indication: ASTHMA
     Dosage: 300 MG, Q4W, SUBCUTANEOUS
     Route: 058
     Dates: start: 20070405, end: 20070417
  2. ZITHROMAX TRI-PAK (AZITHROMYCIN) [Concomitant]
  3. ANTIBIOTICS (NOT SPECIFIED) (ANTIBIOTICS NOS) [Concomitant]

REACTIONS (2)
  - SWELLING FACE [None]
  - URTICARIA [None]
